FAERS Safety Report 20694905 (Version 1)
Quarter: 2022Q2

REPORT INFORMATION
  Report Type: Spontaneous
  Country: US (occurrence: US)
  Receive Date: 20220411
  Receipt Date: 20220411
  Transmission Date: 20220721
  Serious: Yes (Hospitalization, Other)
  Sender: FDA-Public Use
  Company Number: US-Accord-257828

PATIENT
  Age: 28 Year
  Sex: Male

DRUGS (3)
  1. CLOZAPINE [Suspect]
     Active Substance: CLOZAPINE
     Indication: Schizophreniform disorder
     Dosage: 12.5 MG NIGHTLY, AND THE DOSE WAS SLOWLY TITRATED UP TO 175 MG TWICE DAILY.
  2. SERTRALINE [Concomitant]
     Active Substance: SERTRALINE HYDROCHLORIDE
     Indication: Schizophreniform disorder
  3. RISPERIDONE [Concomitant]
     Active Substance: RISPERIDONE
     Indication: Schizophreniform disorder

REACTIONS (7)
  - Pleural effusion [Recovered/Resolved]
  - Eosinophilia [Recovered/Resolved]
  - Weight increased [Unknown]
  - Eosinophilic pleural effusion [Recovered/Resolved]
  - Antipsychotic drug level increased [Recovered/Resolved]
  - Lung consolidation [Recovered/Resolved]
  - Tachycardia [Unknown]
